FAERS Safety Report 9828429 (Version 1)
Quarter: 2013Q4

REPORT INFORMATION
  Report Type: Spontaneous
  Country: US (occurrence: None)
  Receive Date: 20131120
  Receipt Date: 20131120
  Transmission Date: 20140711
  Serious: Yes (Other)
  Sender: FDA-Public Use
  Company Number: 1000050154

PATIENT
  Age: 52 Year
  Sex: Female

DRUGS (5)
  1. VIIBRYD [Suspect]
     Indication: DEPRESSION
     Dosage: 10 MG (10 MG, 1 IN 1 D), ORAL
     Route: 048
     Dates: start: 20131005, end: 20131011
  2. XANAX [Concomitant]
  3. PROPRANOLOL (PROPRANOLOL) (PROPRANOLOL) [Concomitant]
  4. VICODIN (VICODIN) (VICODIN) [Concomitant]
  5. DICLOFENAC (DICLOFENAC) (DICLOFENAC) [Concomitant]

REACTIONS (3)
  - Insomnia [None]
  - Anxiety [None]
  - Nausea [None]
